FAERS Safety Report 24414964 (Version 2)
Quarter: 2024Q4

REPORT INFORMATION
  Report Type: Spontaneous
  Country: BR (occurrence: BR)
  Receive Date: 20241009
  Receipt Date: 20241014
  Transmission Date: 20250115
  Serious: Yes (Other)
  Sender: SANDOZ
  Company Number: BR-002147023-NVSC2022BR003609

PATIENT
  Age: 43 Year
  Sex: Male

DRUGS (9)
  1. VILDAGLIPTIN [Suspect]
     Active Substance: VILDAGLIPTIN
     Indication: Product used for unknown indication
     Dosage: 50 MG
     Route: 065
  2. VILDAGLIPTIN [Suspect]
     Active Substance: VILDAGLIPTIN
     Dosage: UNK
     Route: 065
  3. ZOLPIDEM TARTRATE [Suspect]
     Active Substance: ZOLPIDEM TARTRATE
     Indication: Insomnia
     Dosage: 10 MG
     Route: 065
     Dates: start: 20211104, end: 20211107
  4. ZOLPIDEM TARTRATE [Suspect]
     Active Substance: ZOLPIDEM TARTRATE
     Dosage: 10 MG
     Route: 065
  5. ZOLPIDEM TARTRATE [Suspect]
     Active Substance: ZOLPIDEM TARTRATE
     Dosage: UNK
     Route: 065
  6. GLICLAZIDE [Concomitant]
     Active Substance: GLICLAZIDE
     Indication: Diabetes mellitus
     Dosage: 30 MG
     Route: 065
  7. GLICLAZIDE [Concomitant]
     Active Substance: GLICLAZIDE
     Dosage: 60 MG, TID
     Route: 065
  8. GLICLAZIDE [Concomitant]
     Active Substance: GLICLAZIDE
     Dosage: 2550 UNK
     Route: 065
  9. PREGABALIN [Concomitant]
     Active Substance: PREGABALIN
     Indication: Product used for unknown indication
     Dosage: 30 MG
     Route: 065

REACTIONS (15)
  - Shock [Recovered/Resolved with Sequelae]
  - Hallucination [Unknown]
  - Amnesia [Recovered/Resolved]
  - Urinary incontinence [Recovered/Resolved]
  - Memory impairment [Recovering/Resolving]
  - Speech disorder [Unknown]
  - Headache [Unknown]
  - Libido decreased [Not Recovered/Not Resolved]
  - Agitation [Unknown]
  - Nightmare [Unknown]
  - Anxiety [Unknown]
  - Somnambulism [Recovered/Resolved]
  - Depression [Unknown]
  - Insomnia [Recovered/Resolved]
  - Prescription drug used without a prescription [Unknown]

NARRATIVE: CASE EVENT DATE: 20211107
